FAERS Safety Report 9863348 (Version 1)
Quarter: 2014Q1

REPORT INFORMATION
  Report Type: Spontaneous
  Country: TW (occurrence: TW)
  Receive Date: 20140203
  Receipt Date: 20140203
  Transmission Date: 20141002
  Serious: Yes (Other)
  Sender: FDA-Public Use
  Company Number: TW-SA-2014SA012837

PATIENT
  Age: 36 Year
  Sex: Female

DRUGS (2)
  1. ANTI-THYMOCYTE GLOBULIN (RABBIT) [Suspect]
     Indication: BONE MARROW CONDITIONING REGIMEN
     Route: 065
  2. METHYLPREDNISOLONE [Concomitant]

REACTIONS (5)
  - Type III immune complex mediated reaction [Unknown]
  - Rash morbilliform [Unknown]
  - Urticaria [Unknown]
  - Pyrexia [Unknown]
  - Rash [Unknown]
